FAERS Safety Report 19136619 (Version 1)
Quarter: 2021Q2

REPORT INFORMATION
  Report Type: Report from Study
  Country: None (occurrence: CA)
  Receive Date: 20210415
  Receipt Date: 20210415
  Transmission Date: 20210717
  Serious: Yes (Other)
  Sender: FDA-Public Use
  Company Number: CA-ABBVIE-21K-028-3856340-00

PATIENT
  Age: 30 Year
  Sex: Female

DRUGS (1)
  1. HUMIRA [Suspect]
     Active Substance: ADALIMUMAB
     Indication: UVEITIS
     Dosage: 28 DAYS
     Route: 058
     Dates: start: 20181227

REACTIONS (7)
  - Gastrointestinal disorder [Unknown]
  - Alanine aminotransferase increased [Not Recovered/Not Resolved]
  - Nausea [Unknown]
  - Neoplasm [Not Recovered/Not Resolved]
  - Vomiting [Unknown]
  - Malaise [Not Recovered/Not Resolved]
  - Haemangioma [Not Recovered/Not Resolved]

NARRATIVE: CASE EVENT DATE: 202002
